FAERS Safety Report 10215916 (Version 1)
Quarter: 2014Q2

REPORT INFORMATION
  Report Type: Spontaneous
  Country: IT (occurrence: IT)
  Receive Date: 20140604
  Receipt Date: 20140604
  Transmission Date: 20141212
  Serious: Yes (Other)
  Sender: FDA-Public Use
  Company Number: IT-MYLANLABS-2014S1012165

PATIENT
  Age: 81 Year
  Sex: Male

DRUGS (2)
  1. CLOPIDOGREL [Suspect]
     Indication: THROMBOSIS
     Route: 048
     Dates: start: 20140502, end: 20140510
  2. CARDIOASPIRIN [Concomitant]
     Indication: PRODUCT USED FOR UNKNOWN INDICATION
     Dosage: 30 TABLETS

REACTIONS (2)
  - Erythema [Recovering/Resolving]
  - Hypersensitivity [Recovering/Resolving]
